FAERS Safety Report 4349443-5 (Version None)
Quarter: 2004Q2

REPORT INFORMATION
  Report Type: 
  Country: None (occurrence: None)
  Receive Date: 20040428
  Receipt Date: 20040107
  Transmission Date: 20050107
  Serious: Yes (Death, Other)
  Sender: FDA-Public Use
  Company Number: PHBS2004JP00548

PATIENT
  Age: 54 Year
  Sex: Male
  Weight: 50 kg

DRUGS (8)
  1. GLEEVEC [Suspect]
     Indication: GASTROINTESTINAL STROMAL TUMOUR
     Dosage: 400 MG/D
     Route: 048
     Dates: start: 20031213, end: 20031222
  2. MS CONTIN [Concomitant]
     Indication: CANCER PAIN
     Dosage: 60 MG/D
     Route: 048
     Dates: end: 20031222
  3. KYTRIL [Concomitant]
     Indication: VOMITING
     Dosage: 1 G/D
     Route: 042
     Dates: start: 20031214, end: 20031216
  4. KYTRIL [Concomitant]
     Dosage: 2 MG/D
     Route: 048
     Dates: start: 20031217, end: 20031222
  5. VEEN-3G [Concomitant]
     Indication: NUTRITIONAL SUPPORT
     Dates: start: 20031209, end: 20031218
  6. INTRALIPOS 10 [Concomitant]
     Indication: NUTRITIONAL SUPPORT
     Dates: start: 20031219, end: 20031219
  7. MIXID-H [Concomitant]
     Indication: NUTRITIONAL SUPPORT
     Dates: start: 20031219, end: 20031222
  8. MIXID-L [Concomitant]
     Indication: NUTRITIONAL SUPPORT
     Route: 042
     Dates: start: 20031219, end: 20031222

REACTIONS (8)
  - DISEASE PROGRESSION [None]
  - DYSPNOEA [None]
  - HYPOTENSION [None]
  - MALIGNANT PLEURAL EFFUSION [None]
  - PALPITATIONS [None]
  - PLEURISY [None]
  - PULMONARY OEDEMA [None]
  - PYREXIA [None]
